FAERS Safety Report 5451010-7 (Version None)
Quarter: 2007Q3

REPORT INFORMATION
  Report Type: 
  Country: None (occurrence: None)
  Receive Date: 20070801
  Receipt Date: 20070402
  Transmission Date: 20080115
  Serious: Yes (Hospitalization)
  Sender: FDA-Public Use
  Company Number: 154718USA

PATIENT
  Sex: Female

DRUGS (5)
  1. MELOXICAM [Suspect]
     Dosage: ORAL
     Route: 048
  2. PREDNISONE [Concomitant]
  3. TEGASEROD [Concomitant]
  4. FLUCONAZOLE [Concomitant]
  5. AMOXICILLIN [Concomitant]

REACTIONS (5)
  - FUNGAL INFECTION [None]
  - HEPATIC ENZYME INCREASED [None]
  - HEPATITIS C ANTIBODY [None]
  - OEDEMA PERIPHERAL [None]
  - WEIGHT INCREASED [None]
